FAERS Safety Report 5868697-7 (Version None)
Quarter: 2008Q3

REPORT INFORMATION
  Report Type: 
  Country: None (occurrence: None)
  Receive Date: 20080903
  Receipt Date: 20080829
  Transmission Date: 20090109
  Serious: Yes (Hospitalization, Other)
  Sender: FDA-Public Use
  Company Number: PHHY2008JP19769

PATIENT
  Age: 72 Year
  Sex: Female

DRUGS (6)
  1. TEGRETOL [Suspect]
     Dosage: 200 MG, 2 TABLETS DAILY
     Route: 048
     Dates: start: 20080823
  2. CALSLOT [Concomitant]
     Dosage: 10 DF
     Route: 048
  3. NU-LOTAN [Concomitant]
     Dosage: 50 DF
     Route: 048
  4. LASIX [Concomitant]
     Route: 048
  5. LANSOPRAZOLE [Concomitant]
     Route: 048
  6. WARFARIN SODIUM [Concomitant]
     Route: 048

REACTIONS (2)
  - DEPRESSED LEVEL OF CONSCIOUSNESS [None]
  - LOSS OF CONSCIOUSNESS [None]
